FAERS Safety Report 9265438 (Version 3)
Quarter: 2013Q2

REPORT INFORMATION
  Report Type: Report from Study
  Country: PL (occurrence: PL)
  Receive Date: 20130501
  Receipt Date: 20130603
  Transmission Date: 20140414
  Serious: Yes (Hospitalization)
  Sender: FDA-Public Use
  Company Number: PL-ASTRAZENECA-2013SE16378

PATIENT
  Age: 21486 Day
  Sex: Male
  Weight: 98.1 kg

DRUGS (17)
  1. BETO ZK [Suspect]
     Indication: HYPERTENSION
     Route: 048
     Dates: start: 201302
  2. ACARD [Suspect]
     Indication: CORONARY ARTERY DISEASE
     Route: 048
     Dates: start: 20110131, end: 20130220
  3. ACARD [Suspect]
     Indication: CORONARY ARTERY DISEASE
     Route: 048
     Dates: start: 20130226, end: 20130319
  4. CLEXANE [Suspect]
     Indication: PROPHYLAXIS
     Route: 058
     Dates: start: 201302, end: 201303
  5. BISOCARD [Suspect]
     Indication: HYPERTENSION
     Route: 048
     Dates: start: 201302, end: 201303
  6. SPIRONOL [Suspect]
     Indication: HYPERTENSION
     Route: 048
     Dates: start: 201302, end: 201303
  7. CAPTOPRIL [Suspect]
     Indication: HYPERTENSION
     Route: 048
     Dates: start: 20130225, end: 201303
  8. FUROSEMIDE [Suspect]
     Indication: HYPERTENSION
     Route: 065
     Dates: start: 20130225, end: 201303
  9. AZD6140 CODE NOT BROKEN [Suspect]
     Indication: PERIPHERAL ARTERIAL OCCLUSIVE DISEASE
     Route: 048
     Dates: start: 20130221, end: 20130225
  10. ISOPTIN 240 SR [Concomitant]
     Indication: HYPERTENSION
     Route: 048
     Dates: start: 20071106, end: 20130225
  11. ATORIS [Concomitant]
     Indication: HYPERLIPIDAEMIA
     Route: 048
     Dates: start: 20101130
  12. NOLPAZA [Concomitant]
     Indication: PROPHYLAXIS
     Route: 048
     Dates: start: 20110517, end: 20130225
  13. DIUVER [Concomitant]
     Indication: HYPERTENSION
     Route: 048
     Dates: start: 20111116, end: 20130225
  14. ATACAND [Concomitant]
     Indication: HYPERTENSION
     Route: 048
     Dates: start: 20120215, end: 20130225
  15. CARDURA XL [Concomitant]
     Indication: HYPERTENSION
     Route: 048
     Dates: start: 20120612, end: 20130225
  16. HYGROTON [Concomitant]
     Indication: HYPERTENSION
     Route: 048
     Dates: start: 20130109, end: 201302
  17. KALIPOZ PROL [Concomitant]
     Indication: PROPHYLAXIS
     Route: 048
     Dates: start: 20130109, end: 20130225

REACTIONS (1)
  - Hypertensive crisis [Recovered/Resolved]
